FAERS Safety Report 5537895-4 (Version None)
Quarter: 2007Q4

REPORT INFORMATION
  Report Type: 
  Country: None (occurrence: None)
  Receive Date: 20071207
  Receipt Date: 20071127
  Transmission Date: 20080405
  Serious: Yes (Disabling, Other)
  Sender: FDA-Public Use
  Company Number: DE-PFIZER INC-2007086069

PATIENT
  Sex: Female
  Weight: 76 kg

DRUGS (3)
  1. DOSTINEX [Suspect]
     Indication: HYPERPROLACTINAEMIA
     Route: 048
  2. DOSTINEX [Suspect]
     Indication: PROLACTINOMA
  3. CONTRACEPTIVE, UNSPECIFIED [Concomitant]

REACTIONS (2)
  - SINUSITIS [None]
  - SYSTEMIC LUPUS ERYTHEMATOSUS [None]
